FAERS Safety Report 6963027-1 (Version None)
Quarter: 2010Q3

REPORT INFORMATION
  Report Type: 
  Country: None (occurrence: None)
  Receive Date: 20100902
  Receipt Date: 20100823
  Transmission Date: 20110219
  Serious: Yes (Other)
  Sender: FDA-Public Use
  Company Number: US-ELI_LILLY_AND_COMPANY-US201008006400

PATIENT
  Sex: Female
  Weight: 95.238 kg

DRUGS (14)
  1. BYETTA [Suspect]
     Indication: TYPE 2 DIABETES MELLITUS
     Dosage: 5 UG, 2/D
     Route: 058
  2. BYETTA [Suspect]
     Dosage: 10 UG, 2/D
     Route: 058
  3. CYMBALTA [Concomitant]
     Indication: ANXIETY
     Dosage: 60 MG, DAILY (1/D)
     Route: 048
  4. TRICOR [Concomitant]
     Indication: HYPERTENSION
     Dosage: 145 MG, DAILY (1/D)
  5. CADUET [Concomitant]
     Indication: HYPERTENSION
     Dosage: 40 D/F, DAILY (1/D)
  6. DETROL LA [Concomitant]
     Indication: URINARY INCONTINENCE
     Dosage: 4 MG, DAILY (1/D)
     Route: 008
  7. NEXIUM [Concomitant]
     Indication: GASTROOESOPHAGEAL REFLUX DISEASE
     Dosage: 40 MG, DAILY (1/D)
  8. FOSINOPRIL SODIUM [Concomitant]
     Indication: HYPERTENSION
     Dosage: 25 MG, DAILY (1/D)
  9. GLIMEPIRIDE [Concomitant]
     Indication: TYPE 2 DIABETES MELLITUS
     Dosage: 4 MG, DAILY (1/D)
  10. SINGULAIR [Concomitant]
     Indication: MULTIPLE ALLERGIES
     Dosage: 10 MG, DAILY (1/D)
  11. FEXOFENADINE HCL [Concomitant]
     Indication: MULTIPLE ALLERGIES
     Dosage: 180 MG, DAILY (1/D)
  12. MULTI-VITAMIN [Concomitant]
     Indication: PRODUCT USED FOR UNKNOWN INDICATION
     Dosage: UNK, DAILY (1/D)
  13. VITAMIN E [Concomitant]
     Indication: PRODUCT USED FOR UNKNOWN INDICATION
     Dosage: UNK, DAILY (1/D)
  14. IRON [Concomitant]
     Indication: PRODUCT USED FOR UNKNOWN INDICATION
     Dosage: UNK, DAILY (1/D)

REACTIONS (10)
  - ATTENTION DEFICIT/HYPERACTIVITY DISORDER [None]
  - BLOOD GLUCOSE INCREASED [None]
  - DRUG DOSE OMISSION [None]
  - EYE SWELLING [None]
  - RETINAL HAEMORRHAGE [None]
  - RETINAL VEIN OCCLUSION [None]
  - STRESS [None]
  - VISION BLURRED [None]
  - VISUAL ACUITY REDUCED [None]
  - WEIGHT DECREASED [None]
